FAERS Safety Report 8773838 (Version 1)
Quarter: 2012Q4

REPORT INFORMATION
  Report Type: 
  Country: US (occurrence: US)
  Receive Date: 20120907
  Receipt Date: 20120907
  Transmission Date: 20130627
  Serious: Yes (Other)
  Sender: FDA-Public Use
  Company Number: US-ROCHE-CID000000002130224

PATIENT
  Sex: Male

DRUGS (1)
  1. AVASTIN [Suspect]
     Indication: PRODUCT USED FOR UNKNOWN INDICATION
     Route: 050

REACTIONS (9)
  - Injury [Unknown]
  - Blood pressure increased [Unknown]
  - Crohn^s disease [Unknown]
  - Endophthalmitis [Unknown]
  - Cataract [Unknown]
  - Vitreous opacities [Unknown]
  - Retinal vascular disorder [Unknown]
  - Retinal tear [Unknown]
  - Visual acuity reduced [Unknown]
